FAERS Safety Report 7951876-2 (Version None)
Quarter: 2011Q4

REPORT INFORMATION
  Report Type: 
  Country: None (occurrence: None)
  Receive Date: 20111201
  Receipt Date: 20111201
  Transmission Date: 20120403
  Serious: Yes (Life-Threatening, Hospitalization)
  Sender: FDA-Public Use
  Company Number: None

PATIENT
  Age: 16 Year
  Sex: Female
  Weight: 78.925 kg

DRUGS (1)
  1. LOESTRIN 24 FE [Suspect]
     Indication: POLYCYSTIC OVARIES
     Dosage: 1 TABLET
     Route: 048
     Dates: start: 20110904, end: 20111024

REACTIONS (2)
  - CARDIAC DISORDER [None]
  - PULMONARY EMBOLISM [None]
